FAERS Safety Report 7050185-6 (Version None)
Quarter: 2010Q4

REPORT INFORMATION
  Report Type: 
  Country: None (occurrence: None)
  Receive Date: 20101018
  Receipt Date: 20101013
  Transmission Date: 20110411
  Serious: Yes (Death, Other)
  Sender: FDA-Public Use
  Company Number: SI-CELGENEUS-261-21880-10101138

PATIENT
  Sex: Male
  Weight: 80 kg

DRUGS (5)
  1. REVLIMID [Suspect]
     Indication: MULTIPLE MYELOMA
     Route: 048
     Dates: start: 20100628, end: 20100711
  2. LYRICA [Concomitant]
     Route: 065
     Dates: start: 20100601, end: 20100723
  3. BYOL [Concomitant]
     Route: 065
     Dates: end: 20100723
  4. ALLOPURINOL [Concomitant]
     Indication: HYPERURICAEMIA
     Route: 048
     Dates: start: 20080601, end: 20100723
  5. SEVREDOL [Concomitant]
     Route: 048
     Dates: start: 20100601, end: 20100723

REACTIONS (2)
  - CHOLECYSTITIS ACUTE [None]
  - ESCHERICHIA SEPSIS [None]
